FAERS Safety Report 4452476-1 (Version None)
Quarter: 2004Q3

REPORT INFORMATION
  Report Type: 
  Country: None (occurrence: None)
  Receive Date: 20040916
  Receipt Date: 20040908
  Transmission Date: 20050211
  Serious: Yes (Hospitalization)
  Sender: FDA-Public Use
  Company Number: K200401369

PATIENT
  Age: 66 Year
  Sex: Male

DRUGS (11)
  1. ALTACE [Suspect]
     Dosage: 1.25MG, BID, ORAL
     Route: 048
     Dates: start: 20030806, end: 20040624
  2. ALTACE [Suspect]
     Dosage: 1.25MG, BID, ORAL
     Route: 048
     Dates: start: 20040728, end: 20040731
  3. DIGOXIN [Concomitant]
  4. CORDARONE [Concomitant]
  5. TIAPRIDAL (TIAPRIDE) [Concomitant]
  6. FORLAX (MACROGOL) [Concomitant]
  7. PLAVIX [Concomitant]
  8. RULID (ROXITHROMYCIN) [Concomitant]
  9. ADANCOR (NICORANDIL) [Concomitant]
  10. ASPIRIN [Concomitant]
  11. NIFEDIPINE [Concomitant]

REACTIONS (4)
  - ACUTE PULMONARY OEDEMA [None]
  - HAEMODIALYSIS [None]
  - RENAL ARTERY STENOSIS [None]
  - RENAL FAILURE ACUTE [None]
